APPROVED DRUG PRODUCT: HALOBETASOL PROPIONATE
Active Ingredient: HALOBETASOL PROPIONATE
Strength: 0.05%
Dosage Form/Route: OINTMENT;TOPICAL
Application: A077721 | Product #001
Applicant: COSETTE PHARMACEUTICALS INC
Approved: Sep 7, 2006 | RLD: No | RS: No | Type: DISCN